FAERS Safety Report 8351986-4 (Version None)
Quarter: 2012Q2

REPORT INFORMATION
  Report Type: 
  Country: None (occurrence: None)
  Receive Date: 20120510
  Receipt Date: 20120510
  Transmission Date: 20120825
  Serious: Yes (Other)
  Sender: FDA-Public Use
  Company Number: None

PATIENT
  Age: 39 Year
  Sex: Female
  Weight: 58 kg

DRUGS (2)
  1. TRASTUZUMAB 8 MG/ KG AND 6 MG/KG GENETECH [Suspect]
  2. TCH - TAXOTERE, CARBOPLATIN, HERCEPTIN - [Concomitant]

REACTIONS (4)
  - NAUSEA [None]
  - ELECTROCARDIOGRAM ST SEGMENT ELEVATION [None]
  - PERICARDITIS [None]
  - VOMITING [None]
